FAERS Safety Report 10272303 (Version 1)
Quarter: 2014Q2

REPORT INFORMATION
  Report Type: Spontaneous
  Country: US (occurrence: None)
  Receive Date: 20140627
  Receipt Date: 20140627
  Transmission Date: 20141212
  Serious: Yes (Other)
  Sender: FDA-Public Use
  Company Number: AUR-APL-2014-06525

PATIENT
  Sex: Female

DRUGS (5)
  1. VENLAFAXINE HYDROCHLORIDE EXTENDED-RELEASE CAPSULES [Suspect]
     Indication: PRODUCT USED FOR UNKNOWN INDICATION
  2. ATORVASTATIN (ATORVASTATIN) [Concomitant]
  3. METFORMIN (METFORMIN) [Concomitant]
  4. GLIPIZIDE (GLIPIZIDE) [Concomitant]
  5. LISINOPRIL (LISINOPRIL) [Concomitant]

REACTIONS (1)
  - Withdrawal syndrome [None]
